FAERS Safety Report 7528977-6 (Version None)
Quarter: 2011Q2

REPORT INFORMATION
  Report Type: 
  Country: None (occurrence: None)
  Receive Date: 20110607
  Receipt Date: 20110525
  Transmission Date: 20111010
  Serious: Yes (Other)
  Sender: FDA-Public Use
  Company Number: PHHY2011CA37646

PATIENT
  Sex: Female

DRUGS (4)
  1. CLOZARIL [Suspect]
     Indication: SCHIZOAFFECTIVE DISORDER
     Dosage: 350 MG, DAILY
     Dates: start: 20081219
  2. LOXAPINE HCL [Concomitant]
     Dosage: 25 MG, BID
  3. TOPAMAX [Concomitant]
     Dosage: 100 MG, UNK
  4. SERTRALINE HYDROCHLORIDE [Concomitant]

REACTIONS (8)
  - ANTIPSYCHOTIC DRUG LEVEL INCREASED [None]
  - HAEMOGLOBIN DECREASED [None]
  - MEAN CELL VOLUME DECREASED [None]
  - ANXIETY [None]
  - RED CELL DISTRIBUTION WIDTH INCREASED [None]
  - HEPATOMEGALY [None]
  - HAEMATOCRIT DECREASED [None]
  - RED BLOOD CELL COUNT DECREASED [None]
